FAERS Safety Report 24285821 (Version 1)
Quarter: 2024Q3

REPORT INFORMATION
  Report Type: Spontaneous
  Country: GB (occurrence: GB)
  Receive Date: 20240905
  Receipt Date: 20240905
  Transmission Date: 20241016
  Serious: Yes (Death, Hospitalization, Other)
  Sender: BAYER
  Company Number: GB-BAYER-2024A120360

PATIENT
  Age: 27 Year
  Sex: Male
  Weight: 190 kg

DRUGS (1)
  1. GADOBUTROL [Suspect]
     Active Substance: GADOBUTROL
     Dosage: 7.5 ML, BID
     Route: 042
     Dates: start: 20231021, end: 20231021

REACTIONS (10)
  - Death [Fatal]
  - Cardiac arrest [None]
  - Contrast media reaction [None]
  - Agitation [None]
  - Panic attack [None]
  - Hyperhidrosis [None]
  - Dyspnoea [None]
  - Malaise [None]
  - Anxiety [None]
  - Cold sweat [None]

NARRATIVE: CASE EVENT DATE: 20231021
